FAERS Safety Report 17211748 (Version 7)
Quarter: 2020Q2

REPORT INFORMATION
  Report Type: Report from Study
  Country: KR (occurrence: KR)
  Receive Date: 20191230
  Receipt Date: 20200528
  Transmission Date: 20200713
  Serious: Yes (Hospitalization)
  Sender: FDA-Public Use
  Company Number: KR-ROCHE-2506204

PATIENT
  Age: 77 Year
  Sex: Male
  Weight: 49 kg

DRUGS (74)
  1. PHAZYME [SIMETICONE] [Concomitant]
     Indication: SUPPORTIVE CARE
     Dosage: PRN (AS NEEDED)
     Route: 048
     Dates: start: 20191113
  2. GASTER [Concomitant]
     Active Substance: FAMOTIDINE
     Dosage: PRN (AS NEEDED
     Route: 042
     Dates: start: 20191106, end: 20200111
  3. GASTER [Concomitant]
     Active Substance: FAMOTIDINE
     Dosage: PRN (AS NEEDED
     Route: 048
     Dates: start: 20191118, end: 20200111
  4. MAGNESIUM [Concomitant]
     Active Substance: MAGNESIUM
     Route: 042
     Dates: start: 20191121, end: 20191127
  5. FENTANYL. [Concomitant]
     Active Substance: FENTANYL
     Indication: SEDATION
     Dosage: 100
     Route: 016
     Dates: start: 20191112, end: 20191112
  6. PULMICORT TURBUHALER [Concomitant]
     Active Substance: BUDESONIDE
     Indication: SUPPORTIVE CARE
     Dosage: 3 AMPULE
     Route: 055
     Dates: start: 20191108, end: 20191118
  7. SYNTHROID [Concomitant]
     Active Substance: LEVOTHYROXINE SODIUM
     Dosage: PRN (AS NEEDED)
     Route: 048
     Dates: start: 20191104
  8. DIOVAN [Concomitant]
     Active Substance: VALSARTAN
     Indication: HYPERTENSION
     Route: 048
     Dates: start: 2006
  9. MAGO [MAGNESIUM OXIDE] [Concomitant]
     Route: 048
     Dates: start: 20200116, end: 20200209
  10. ESOMEPRAZOLE. [Concomitant]
     Active Substance: ESOMEPRAZOLE MAGNESIUM
     Route: 048
     Dates: start: 20191115
  11. DUPHALAC EASY [Concomitant]
     Active Substance: LACTULOSE
     Dosage: PRN (AS NEEDED)
     Route: 048
     Dates: start: 20191116, end: 20200206
  12. PANTOLOC [PANTOPRAZOLE] [Concomitant]
     Active Substance: PANTOPRAZOLE SODIUM
     Dosage: PRN (AS NEEDED)
     Route: 042
     Dates: start: 20191123, end: 20200201
  13. TRANEXAMIC ACID. [Concomitant]
     Active Substance: TRANEXAMIC ACID
     Dosage: PRN (AS NEEDED)
     Route: 042
     Dates: start: 20191227, end: 20200111
  14. ADALAT [Concomitant]
     Active Substance: NIFEDIPINE
     Indication: HYPERTENSION
     Route: 048
     Dates: start: 20191229, end: 20200102
  15. GODEX [ADENINE HYDROCHLORIDE;BIFENDATE;CARNITINE OROTATE;CYANOCOBALAMI [Concomitant]
     Dosage: 1 CAPSULE
     Route: 048
     Dates: start: 20191122, end: 20200102
  16. PENTAMIDINE [Concomitant]
     Active Substance: PENTAMIDINE
     Indication: SEDATION
     Dosage: 200
     Route: 042
     Dates: start: 20191112, end: 20191114
  17. MUCOMYST [Concomitant]
     Active Substance: ACETYLCYSTEINE
     Indication: SUPPORTIVE CARE
     Dosage: 1
     Route: 055
     Dates: start: 20191106
  18. ATROVENT [Concomitant]
     Active Substance: IPRATROPIUM BROMIDE
     Indication: SUPPORTIVE CARE
     Dosage: PRN (AS NEEDED
     Route: 065
     Dates: start: 20191112
  19. STILNOX [Concomitant]
     Active Substance: ZOLPIDEM TARTRATE
     Indication: SUPPORTIVE CARE
     Dosage: PRN (AS NEEDED)
     Route: 048
     Dates: start: 20191109, end: 20200112
  20. TRANSAMIN [Concomitant]
     Active Substance: TRANEXAMIC ACID
     Dosage: PRN (AS NEEDED)
     Route: 048
     Dates: start: 20191224, end: 20200111
  21. EBASTEL [Concomitant]
     Active Substance: EBASTINE
     Route: 048
     Dates: start: 20191219, end: 20191219
  22. LIDOCAINE. [Concomitant]
     Active Substance: LIDOCAINE
     Route: 030
     Dates: start: 20191121, end: 20191121
  23. ALBUMIN [Concomitant]
     Active Substance: ALBUMIN HUMAN
     Indication: SUPPORTIVE CARE
     Dosage: 2 % SOLUTION
     Route: 042
     Dates: start: 20191113, end: 20191114
  24. CARBOPLATIN. [Suspect]
     Active Substance: CARBOPLATIN
     Indication: NON-SMALL CELL LUNG CANCER
     Dosage: DATE OF MOST RECENT DOSE OF CARBOPLATIN (400 MG) PRIOR TO SAE ONSET: 23/SEP/2019
     Route: 042
     Dates: start: 20190708
  25. NAB-PACLITAXEL [Suspect]
     Active Substance: PACLITAXEL
     Indication: NON-SMALL CELL LUNG CANCER
     Dosage: DATE OF MOST RECENT DOSE OF NAB-PACLITAXEL (147 MG) PRIOR TO SAE ONSET: 07/OCT/2019
     Route: 042
     Dates: start: 20190708
  26. PHENIRAMIN [Concomitant]
     Dosage: PRN (AS NEEDED)
     Route: 042
     Dates: start: 20191121, end: 20200112
  27. CIRCADIN [Concomitant]
     Active Substance: MELATONIN
     Route: 048
     Dates: start: 20200115
  28. ANTIBIO [Concomitant]
     Route: 048
     Dates: start: 20200111, end: 20200123
  29. HYSPAN [Concomitant]
     Active Substance: BUTYLSCOPOLAMINE BROMIDE
     Route: 048
     Dates: start: 20200106, end: 20200106
  30. MOTILITONE [Concomitant]
     Active Substance: HERBALS
     Dosage: 3 TABLETS
     Route: 048
     Dates: start: 20191206, end: 20191219
  31. HEPA MERZ [Concomitant]
     Indication: HEPATOTOXICITY
     Route: 042
     Dates: start: 20191115, end: 20191115
  32. ADELAVIN [Concomitant]
     Active Substance: FLAVIN ADENINE DINUCLEOTIDE
     Indication: HEPATOTOXICITY
     Dosage: 1 AMPULE
     Route: 042
     Dates: start: 20191115, end: 20191129
  33. ULTIVA [Concomitant]
     Active Substance: REMIFENTANIL HYDROCHLORIDE
     Indication: SEDATION
     Route: 042
     Dates: start: 20191113, end: 20191222
  34. VENTOLIN [Concomitant]
     Active Substance: ALBUTEROL SULFATE
     Indication: SUPPORTIVE CARE
     Dosage: 4 AMPULE
     Route: 055
     Dates: start: 20191113, end: 20191216
  35. LIPITOL [Concomitant]
     Indication: HYPERLIPIDAEMIA
     Route: 048
     Dates: start: 2006
  36. ONDANT [Concomitant]
     Dosage: PRN (AS NEEDED)
     Route: 042
     Dates: start: 20191129, end: 20200201
  37. METOPROLOL. [Concomitant]
     Active Substance: METOPROLOL
     Indication: HYPERTENSION
     Dosage: PRN (AS NEEDED)
     Route: 048
     Dates: start: 20191114
  38. ESOMEPRAZOLE. [Concomitant]
     Active Substance: ESOMEPRAZOLE MAGNESIUM
     Route: 042
     Dates: start: 20191216, end: 20191224
  39. LIVERACT [Concomitant]
     Indication: SUPPORTIVE CARE
     Dosage: 1 AMPULE
     Route: 042
     Dates: start: 20191116, end: 20191231
  40. LEGALON [Concomitant]
     Active Substance: DIETARY SUPPLEMENT\HERBALS\MILK THISTLE
     Indication: HEPATOTOXICITY
     Route: 048
     Dates: start: 20191115, end: 20191117
  41. CODIOVAN [Concomitant]
     Active Substance: HYDROCHLOROTHIAZIDE\VALSARTAN
     Indication: HYPERTENSION
     Dosage: 0.5
     Route: 048
     Dates: start: 20191105, end: 20191127
  42. HARNAL [Concomitant]
     Active Substance: TAMSULOSIN HYDROCHLORIDE
     Route: 048
     Dates: start: 20191210, end: 20191215
  43. BOLGRE [Concomitant]
     Indication: ANAEMIA
     Dosage: PRN (AS NEEDED)
     Route: 048
     Dates: start: 20191113
  44. LASIX [Concomitant]
     Active Substance: FUROSEMIDE
     Indication: PROPHYLAXIS
     Route: 048
     Dates: start: 20191113, end: 20200120
  45. MAGO [MAGNESIUM OXIDE] [Concomitant]
     Route: 048
     Dates: start: 20191113, end: 20200206
  46. LAMINA-G [Concomitant]
     Indication: SUPPORTIVE CARE
     Dosage: PRN (AS NEEDED)
     Route: 048
     Dates: start: 20191113, end: 20200112
  47. PRECEDEX [Concomitant]
     Active Substance: DEXMEDETOMIDINE HYDROCHLORIDE
     Indication: SEDATION
     Dosage: PRN (AS NEEDED)
     Route: 042
     Dates: start: 20191112, end: 20200112
  48. GASMOTIN [Concomitant]
     Active Substance: MOSAPRIDE CITRATE
     Dosage: PRN (AS NEEDED
     Route: 048
     Dates: start: 20191118
  49. MACPERAN [Concomitant]
     Active Substance: METOCLOPRAMIDE HYDROCHLORIDE
     Route: 048
     Dates: start: 20200105, end: 20200201
  50. NORVASC [Concomitant]
     Active Substance: AMLODIPINE BESYLATE
     Indication: HYPERTENSION
     Route: 048
     Dates: start: 20200110
  51. VECARON [Concomitant]
     Indication: SEDATION
     Route: 042
     Dates: start: 20191121, end: 20191121
  52. ADRENALIN (EPINEPHRINE) [Concomitant]
     Active Substance: EPINEPHRINE
     Dosage: 1 AMPULE
     Route: 042
     Dates: start: 20191121, end: 20191121
  53. URUSA [Concomitant]
     Active Substance: URSODIOL
     Indication: HEPATOTOXICITY
     Route: 048
     Dates: start: 20191115, end: 20191117
  54. APETROL [MEGESTROL ACETATE] [Concomitant]
     Indication: SUPPORTIVE CARE
     Route: 048
     Dates: start: 20191115, end: 20191225
  55. STILNOX [Concomitant]
     Active Substance: ZOLPIDEM TARTRATE
     Indication: SUPPORTIVE CARE
     Route: 048
     Dates: start: 20191109, end: 20200112
  56. VAHELVA RESPIMAT [Concomitant]
     Indication: SUPPORTIVE CARE
     Dosage: 1
     Route: 055
     Dates: start: 20191104, end: 20191117
  57. GLYCERIN [GLYCEROL] [Concomitant]
     Dosage: 1
     Route: 054
     Dates: start: 20191014, end: 20191124
  58. ATROVAN [Concomitant]
     Dosage: 1
     Route: 048
     Dates: start: 20191104, end: 20191227
  59. MUCOPECT [Concomitant]
     Dosage: 3
     Route: 048
     Dates: start: 20191111, end: 20191117
  60. SYNTHROID [Concomitant]
     Active Substance: LEVOTHYROXINE SODIUM
     Indication: HYPOTHYROIDISM
     Route: 048
     Dates: start: 2016
  61. DICHLOZID [Concomitant]
     Indication: HYPERTENSION
     Route: 048
     Dates: start: 2006
  62. DICHLOZID [Concomitant]
     Dosage: PRN (AS NEEDED)
     Route: 048
     Dates: start: 20191115, end: 20200114
  63. HARNAL [Concomitant]
     Active Substance: TAMSULOSIN HYDROCHLORIDE
     Indication: BENIGN PROSTATIC HYPERPLASIA
     Route: 048
     Dates: start: 20190826
  64. ASIMA [Concomitant]
     Active Substance: DOXOFYLLINE
     Dosage: PRN (AS NEEDED)
     Route: 048
     Dates: start: 20191109, end: 20200128
  65. K-CONTIN [Concomitant]
     Dosage: PRN (AS NEEDED
     Route: 048
     Dates: start: 20191113, end: 20200114
  66. PERDIPINE [Concomitant]
     Active Substance: NICARDIPINE HYDROCHLORIDE
     Indication: HYPERTENSION
     Route: 042
     Dates: start: 20191216, end: 20191231
  67. ATEZOLIZUMAB. [Suspect]
     Active Substance: ATEZOLIZUMAB
     Indication: NON-SMALL CELL LUNG CANCER
     Dosage: DATE OF MOST RECENT DOSE OF ATEZOLIZUMAB (1200 MG) PRIOR TO SAE ONSET: 23/SEP/2019
     Route: 042
     Dates: start: 20190708
  68. ONDANT [Concomitant]
     Dosage: PRN (AS NEEDED)
     Route: 048
     Dates: start: 20191106
  69. SEROQUEL [Concomitant]
     Active Substance: QUETIAPINE FUMARATE
     Dosage: PRN (AS NEEDED)
     Route: 048
     Dates: start: 20191114, end: 20200121
  70. MEGACE [Concomitant]
     Active Substance: MEGESTROL ACETATE
     Indication: SUPPORTIVE CARE
     Dosage: PRN (AS NEEDED)
     Route: 048
     Dates: start: 20191118, end: 20200128
  71. MACPERAN [Concomitant]
     Active Substance: METOCLOPRAMIDE HYDROCHLORIDE
     Dosage: PRN (AS NEEDED
     Route: 042
     Dates: start: 20191123, end: 20200201
  72. DILATREND [Concomitant]
     Active Substance: CARVEDILOL
     Indication: HYPERTENSION
     Route: 048
     Dates: start: 20191228, end: 20200109
  73. XYZAL [Concomitant]
     Active Substance: LEVOCETIRIZINE DIHYDROCHLORIDE
     Route: 048
     Dates: start: 20191219, end: 20191220
  74. MIDRONE [Concomitant]
     Route: 048
     Dates: start: 20191217, end: 20191224

REACTIONS (1)
  - Pneumonia aspiration [Recovering/Resolving]

NARRATIVE: CASE EVENT DATE: 20191111
